FAERS Safety Report 23435223 (Version 3)
Quarter: 2024Q1

REPORT INFORMATION
  Report Type: Spontaneous
  Country: NZ (occurrence: NZ)
  Receive Date: 20240123
  Receipt Date: 20240305
  Transmission Date: 20240410
  Serious: Yes (Hospitalization, Other)
  Sender: FDA-Public Use
  Company Number: NZ-BoehringerIngelheim-2023-BI-272069

PATIENT
  Age: 14 Year
  Sex: Female
  Weight: 44 kg

DRUGS (1)
  1. JARDIANCE [Suspect]
     Active Substance: EMPAGLIFLOZIN
     Indication: Weight decreased

REACTIONS (6)
  - Presyncope [Recovered/Resolved]
  - Anxiety [Recovered/Resolved]
  - Glycosuria [Recovered/Resolved]
  - Intentional product misuse [Recovered/Resolved]
  - Intentional product use issue [Recovered/Resolved]
  - Weight decreased [Recovering/Resolving]

NARRATIVE: CASE EVENT DATE: 20231026
